FAERS Safety Report 9077141 (Version 2)
Quarter: 2013Q1

REPORT INFORMATION
  Report Type: Report from Study
  Country: US (occurrence: US)
  Receive Date: 20130129
  Receipt Date: 20130321
  Transmission Date: 20140127
  Serious: Yes (Other)
  Sender: FDA-Public Use
  Company Number: US-ABBOTT-12P-163-0946548-00

PATIENT
  Sex: Male

DRUGS (1)
  1. HUMIRA 40 MG/ 0.8 ML PRE-FILLED SYRINGE [Suspect]
     Indication: PSORIASIS
     Dates: start: 200901, end: 201206

REACTIONS (7)
  - Skin ulcer [Recovering/Resolving]
  - Impaired healing [Unknown]
  - Injury [Unknown]
  - Injection site urticaria [Unknown]
  - Nasopharyngitis [Unknown]
  - Influenza [Unknown]
  - Injection site pruritus [Unknown]
